FAERS Safety Report 7527358-9 (Version None)
Quarter: 2011Q2

REPORT INFORMATION
  Report Type: 
  Country: None (occurrence: None)
  Receive Date: 20110607
  Receipt Date: 20110601
  Transmission Date: 20111010
  Serious: Yes (Death)
  Sender: FDA-Public Use
  Company Number: US-CELGENEUS-163-21880-11060174

PATIENT
  Sex: Female

DRUGS (16)
  1. DETROL [Concomitant]
     Dosage: 1 MILLIGRAM
     Route: 048
  2. LANTUS [Concomitant]
     Dosage: 100 MILLILITER
     Route: 051
  3. BENADRYL [Concomitant]
     Dosage: 25 MILLIGRAM
     Route: 048
  4. COUMADIN [Concomitant]
     Dosage: 1 MILLIGRAM
     Route: 048
  5. NEXIUM [Concomitant]
     Dosage: 20 MILLIGRAM
     Route: 048
  6. OXYCODONE HCL [Concomitant]
     Dosage: 5 MILLIGRAM
     Route: 048
  7. CALCIUM + VITAMIN D [Concomitant]
     Route: 048
  8. EFFEXOR [Concomitant]
     Dosage: 25 MILLIGRAM
     Route: 048
  9. DEXAMETHASONE [Concomitant]
     Dosage: 4 MILLIGRAM
     Route: 048
  10. LOVAZA [Concomitant]
     Dosage: 1000 MILLIGRAM
     Route: 048
  11. REVLIMID [Suspect]
     Indication: MULTIPLE MYELOMA
     Dosage: 15 MILLIGRAM
     Route: 048
     Dates: start: 20100601
  12. EYE-VITES [Concomitant]
     Route: 048
  13. GLUCOSAMINE/CHONDROITIN [Concomitant]
     Dosage: 250-200
     Route: 048
  14. LISINOPRIL [Concomitant]
     Dosage: 2.5 MILLIGRAM
     Route: 048
  15. METFORMIN HCL [Concomitant]
     Dosage: 500 MILLIGRAM
     Route: 048
  16. MULTI-VITAMINS [Concomitant]
     Route: 048

REACTIONS (1)
  - DEATH [None]
